FAERS Safety Report 23539048 (Version 2)
Quarter: 2024Q1

REPORT INFORMATION
  Report Type: Spontaneous
  Country: CA (occurrence: CA)
  Receive Date: 20240219
  Receipt Date: 20240320
  Transmission Date: 20240410
  Serious: Yes (Death, Hospitalization)
  Sender: FDA-Public Use
  Company Number: CA-PFIZER INC-PV202400022180

PATIENT
  Age: 68 Year
  Sex: Male

DRUGS (3)
  1. INLYTA [Suspect]
     Active Substance: AXITINIB
     Dosage: 5 MG, 1X/DAY
     Dates: start: 20240107
  2. INLYTA [Suspect]
     Active Substance: AXITINIB
     Dosage: 3 MG, 2X/DAY
     Dates: start: 2024
  3. INLYTA [Suspect]
     Active Substance: AXITINIB
     Dosage: 3 MG, DAILY

REACTIONS (2)
  - Death [Fatal]
  - Portal vein thrombosis [Unknown]

NARRATIVE: CASE EVENT DATE: 20240227
